FAERS Safety Report 20127081 (Version 5)
Quarter: 2021Q4

REPORT INFORMATION
  Report Type: Spontaneous
  Country: US (occurrence: US)
  Receive Date: 20211129
  Receipt Date: 20211218
  Transmission Date: 20220304
  Serious: Yes (Disabling, Other)
  Sender: FDA-Public Use
  Company Number: US-SA-SAC20211119000788

PATIENT
  Age: 41 Year
  Sex: Female

DRUGS (2)
  1. CABLIVI [Suspect]
     Active Substance: CAPLACIZUMAB-YHDP
     Indication: Immune thrombocytopenia
     Dosage: 11 MG, QD
     Route: 058
     Dates: start: 20211116
  2. PREDNISONE [Suspect]
     Active Substance: PREDNISONE

REACTIONS (14)
  - Haemorrhagic diathesis [Unknown]
  - Hypokalaemia [Unknown]
  - Walking aid user [Unknown]
  - Eye disorder [Unknown]
  - Haemoglobin decreased [Unknown]
  - Platelet count decreased [Unknown]
  - Haematocrit decreased [Unknown]
  - Off label use [Unknown]
  - Oral candidiasis [Unknown]
  - Myopathy [Unknown]
  - Pancreatic pseudocyst [Unknown]
  - Increased tendency to bruise [Unknown]
  - Visual impairment [Unknown]
  - Blood lactate dehydrogenase decreased [Unknown]

NARRATIVE: CASE EVENT DATE: 20210101
